FAERS Safety Report 7392086-X (Version None)
Quarter: 2011Q2

REPORT INFORMATION
  Report Type: 
  Country: None (occurrence: None)
  Receive Date: 20110404
  Receipt Date: 20110324
  Transmission Date: 20111010
  Serious: Yes (Hospitalization)
  Sender: FDA-Public Use
  Company Number: A0772860A

PATIENT
  Age: 48 Year
  Sex: Female
  Weight: 74.1 kg

DRUGS (7)
  1. LUNESTA [Concomitant]
  2. AVANDIA [Suspect]
     Indication: DIABETES MELLITUS
     Dosage: 8MG PER DAY
     Route: 048
     Dates: start: 20000626, end: 20080101
  3. AVANDAMET [Suspect]
     Indication: DIABETES MELLITUS
     Route: 048
     Dates: start: 20080201
  4. LYRICA [Concomitant]
  5. HYDROCODONE BITARTRATE [Concomitant]
  6. TRAMADOL [Concomitant]
  7. LISINOPRIL [Concomitant]

REACTIONS (2)
  - MYOCARDIAL INFARCTION [None]
  - ARTERIOSCLEROSIS [None]
